FAERS Safety Report 23178973 (Version 2)
Quarter: 2023Q4

REPORT INFORMATION
  Report Type: Spontaneous
  Country: FR (occurrence: FR)
  Receive Date: 20231113
  Receipt Date: 20231130
  Transmission Date: 20240110
  Serious: Yes (Death)
  Sender: FDA-Public Use
  Company Number: None

PATIENT
  Age: 77 Year
  Sex: Female
  Weight: 88 kg

DRUGS (1)
  1. MEROPENEM [Suspect]
     Active Substance: MEROPENEM
     Indication: Pseudomonas infection
     Dosage: 6 G
     Route: 042
     Dates: start: 20230921, end: 20231023

REACTIONS (3)
  - Acute kidney injury [Fatal]
  - Pancytopenia [Fatal]
  - Erythema [Fatal]

NARRATIVE: CASE EVENT DATE: 20231020
